FAERS Safety Report 22633007 (Version 2)
Quarter: 2023Q2

REPORT INFORMATION
  Report Type: Report from Study
  Country: AT (occurrence: None)
  Receive Date: 20230623
  Receipt Date: 20230626
  Transmission Date: 20230721
  Serious: Yes (Hospitalization)
  Sender: FDA-Public Use
  Company Number: AT-ROCHE-3369239

PATIENT
  Age: 80 Year
  Sex: Female

DRUGS (4)
  1. GLOFITAMAB [Suspect]
     Active Substance: GLOFITAMAB
     Indication: Diffuse large B-cell lymphoma
     Dosage: C1D15
     Route: 042
     Dates: start: 20230609, end: 20230609
  2. GLOFITAMAB [Suspect]
     Active Substance: GLOFITAMAB
     Dosage: C2D1
     Route: 042
     Dates: start: 20230616, end: 20230616
  3. RITUXIMAB [Suspect]
     Active Substance: RITUXIMAB
     Indication: Diffuse large B-cell lymphoma
     Dosage: C2D1
     Route: 041
     Dates: start: 20230615, end: 20230615
  4. POLATUZUMAB VEDOTIN [Suspect]
     Active Substance: POLATUZUMAB VEDOTIN
     Indication: Diffuse large B-cell lymphoma
     Dosage: C2D1
     Route: 042
     Dates: start: 20230615

REACTIONS (2)
  - Cytokine release syndrome [Recovered/Resolved]
  - Cytokine release syndrome [Recovered/Resolved]

NARRATIVE: CASE EVENT DATE: 20230611
